FAERS Safety Report 25614303 (Version 1)
Quarter: 2025Q3

REPORT INFORMATION
  Report Type: Report from Study
  Country: US (occurrence: US)
  Receive Date: 20250728
  Receipt Date: 20250728
  Transmission Date: 20251021
  Serious: Yes (Other)
  Sender: ABBVIE
  Company Number: US-ABBVIE-6388724

PATIENT
  Sex: Female

DRUGS (1)
  1. HUMIRA [Suspect]
     Active Substance: ADALIMUMAB
     Indication: Osteoporosis
     Route: 058

REACTIONS (6)
  - Lung disorder [Recovering/Resolving]
  - Shoulder operation [Recovering/Resolving]
  - Knee operation [Recovered/Resolved]
  - Bone operation [Recovering/Resolving]
  - Off label use [Not Recovered/Not Resolved]
  - Adverse drug reaction [Unknown]
